FAERS Safety Report 12852611 (Version 1)
Quarter: 2016Q4

REPORT INFORMATION
  Report Type: Spontaneous
  Country: US (occurrence: US)
  Receive Date: 20161017
  Receipt Date: 20161017
  Transmission Date: 20170207
  Serious: Yes (Hospitalization)
  Sender: FDA-Public Use
  Company Number: US-PFIZER INC-2016442498

PATIENT
  Sex: Female

DRUGS (2)
  1. ADVIL [Suspect]
     Active Substance: IBUPROFEN
     Indication: ARTHRITIS
     Dosage: 400 MG, TWICE DAILY (WHEN NEEDED)
  2. ADVIL [Suspect]
     Active Substance: IBUPROFEN
     Indication: BACK PAIN

REACTIONS (1)
  - Obesity [Recovered/Resolved]
